FAERS Safety Report 4802904-4 (Version None)
Quarter: 2005Q4

REPORT INFORMATION
  Report Type: 
  Country: None (occurrence: None)
  Receive Date: 20051013
  Receipt Date: 20050928
  Transmission Date: 20060501
  Serious: Yes (Life-Threatening, Hospitalization)
  Sender: FDA-Public Use
  Company Number: 05-02-05960

PATIENT
  Age: 78 Year
  Sex: Male

DRUGS (12)
  1. CETUXIMAB (CETUXIMAB) [Suspect]
     Indication: COLORECTAL CANCER METASTATIC
     Dosage: SEE IMAGE
     Route: 042
     Dates: start: 20050429, end: 20050429
  2. CETUXIMAB (CETUXIMAB) [Suspect]
     Indication: COLORECTAL CANCER METASTATIC
     Dosage: SEE IMAGE
     Route: 042
     Dates: end: 20050719
  3. IRINOTECAN (IRINOTECAN) [Suspect]
     Indication: COLORECTAL CANCER METASTATIC
     Dosage: 180 MG/M2  I.V.
     Route: 042
     Dates: start: 20050429, end: 20050705
  4. LEUCOVORIN CALCIUM [Concomitant]
     Indication: COLORECTAL CANCER METASTATIC
     Dosage: 400 MG/M2  I.V.
     Route: 042
     Dates: start: 20050429, end: 20050705
  5. FLUOROURACIL [Suspect]
     Indication: COLORECTAL CANCER METASTATIC
     Dosage: 240 MG/M2  I.V.
     Route: 042
     Dates: start: 20050429, end: 20050705
  6. METRONIDAZOLE [Concomitant]
  7. CIPROLFOXACIN (CIPROFLOXACIN) [Concomitant]
  8. POTASSIUM CHLORIDE [Concomitant]
  9. DICLOFENAC (DICLOFENAC) [Concomitant]
  10. CODEINE PHOSPHATE (CODEINE PHOSPHATE) [Concomitant]
  11. TINZAPARIN (TINZAPARIN) [Concomitant]
  12. ATENOLOL [Concomitant]

REACTIONS (1)
  - MYOCARDIAL INFARCTION [None]
